FAERS Safety Report 9557960 (Version 1)
Quarter: 2013Q3

REPORT INFORMATION
  Report Type: Spontaneous
  Country: US (occurrence: None)
  Receive Date: 20130724
  Receipt Date: 20130724
  Transmission Date: 20140515
  Serious: Yes (Other)
  Sender: FDA-Public Use
  Company Number: PHEH2012US019287

PATIENT
  Age: 70 Year
  Sex: Female

DRUGS (1)
  1. DIOVAN HCT [Suspect]
     Dosage: 1 TABLET DAILY, ORAL
     Route: 048

REACTIONS (8)
  - Blood pressure increased [None]
  - Burning sensation [None]
  - Nausea [None]
  - Asthenia [None]
  - Heart rate increased [None]
  - Vision blurred [None]
  - Dizziness [None]
  - Visual impairment [None]
